FAERS Safety Report 4571708-2 (Version None)
Quarter: 2005Q1

REPORT INFORMATION
  Report Type: 
  Country: None (occurrence: None)
  Receive Date: 20050203
  Receipt Date: 20050203
  Transmission Date: 20050727
  Serious: No
  Sender: FDA-Public Use
  Company Number: None

PATIENT
  Sex: Female

DRUGS (1)
  1. TIMOLOL GEL [Suspect]
     Indication: GLAUCOMA
     Dosage: ONE GTT OU QD
     Dates: start: 20011101, end: 20020201

REACTIONS (1)
  - PHARMACEUTICAL PRODUCT COMPLAINT [None]
